FAERS Safety Report 21466050 (Version 1)
Quarter: 2022Q4

REPORT INFORMATION
  Report Type: Spontaneous
  Country: US (occurrence: None)
  Receive Date: 20221015
  Receipt Date: 20221015
  Transmission Date: 20230113
  Serious: No
  Sender: FDA-Public Use
  Company Number: None

PATIENT
  Age: 63 Year
  Sex: Male
  Weight: 76.5 kg

DRUGS (2)
  1. COPPERTONE SPORT MINERAL SUNSCREEN SPF 50 [Suspect]
     Active Substance: ZINC OXIDE
     Indication: Prophylaxis against solar radiation
     Dosage: OTHER QUANTITY : 142 OUNCE(S);?OTHER FREQUENCY : AS NEEDED;?
     Route: 061
     Dates: start: 20221009, end: 20221014
  2. CRESTOR [Concomitant]
     Active Substance: ROSUVASTATIN CALCIUM

REACTIONS (4)
  - Rash [None]
  - Myalgia [None]
  - Cough [None]
  - Histamine level increased [None]

NARRATIVE: CASE EVENT DATE: 20221011
